FAERS Safety Report 9961365 (Version 2)
Quarter: 2014Q1

REPORT INFORMATION
  Report Type: Spontaneous
  Country: FR (occurrence: FR)
  Receive Date: 20140305
  Receipt Date: 20140305
  Transmission Date: 20141002
  Serious: Yes (Hospitalization)
  Sender: FDA-Public Use
  Company Number: FR-SANOFI-AVENTIS-2013SA085971

PATIENT
  Age: 76 Year
  Sex: Female

DRUGS (10)
  1. TAVANIC [Suspect]
     Indication: LUNG DISORDER
     Route: 048
     Dates: start: 20130710, end: 20130726
  2. LOVENOX [Suspect]
     Indication: PROPHYLAXIS
     Route: 058
     Dates: start: 20130712, end: 20130718
  3. TIORFAN [Suspect]
     Indication: DIARRHOEA
     Route: 048
     Dates: start: 20130711, end: 20130722
  4. CEFOTAXIME [Suspect]
     Indication: LUNG DISORDER
     Route: 042
     Dates: start: 20130710, end: 20130722
  5. LACTEOL [Concomitant]
  6. SOTALOL [Concomitant]
  7. ATROVENT [Concomitant]
  8. DOLIPRANE [Concomitant]
  9. INEXIUM [Concomitant]
  10. LOPERAMIDE [Concomitant]

REACTIONS (4)
  - Toxic skin eruption [Recovered/Resolved]
  - Rash pustular [Recovered/Resolved]
  - Eosinophilia [Recovered/Resolved]
  - Acute generalised exanthematous pustulosis [Recovered/Resolved]
